FAERS Safety Report 7556680-5 (Version None)
Quarter: 2011Q2

REPORT INFORMATION
  Report Type: 
  Country: None (occurrence: None)
  Receive Date: 20110616
  Receipt Date: 20110616
  Transmission Date: 20111010
  Serious: No
  Sender: FDA-Public Use
  Company Number: None

PATIENT
  Age: 65 Year
  Sex: Male
  Weight: 103 kg

DRUGS (1)
  1. AMPHOTERICIN B [Suspect]
     Indication: PNEUMONIA FUNGAL
     Dosage: 500 MG EVERY DAY IV
     Route: 042
     Dates: start: 20110516, end: 20110516

REACTIONS (7)
  - TACHYPNOEA [None]
  - CHILLS [None]
  - RESPIRATORY DISTRESS [None]
  - TREMOR [None]
  - WHEEZING [None]
  - FLUSHING [None]
  - COUGH [None]
